FAERS Safety Report 8348796-0 (Version None)
Quarter: 2012Q2

REPORT INFORMATION
  Report Type: 
  Country: None (occurrence: None)
  Receive Date: 20120510
  Receipt Date: 20120504
  Transmission Date: 20120825
  Serious: No
  Sender: FDA-Public Use
  Company Number: US-PFIZER INC-2012068893

PATIENT
  Sex: Female
  Weight: 72.562 kg

DRUGS (1)
  1. ADVIL PM [Suspect]
     Indication: BACK PAIN
     Dosage: UNK, AS NEEDED
     Route: 048

REACTIONS (1)
  - INSOMNIA [None]
